FAERS Safety Report 26110053 (Version 1)
Quarter: 2025Q4

REPORT INFORMATION
  Report Type: Spontaneous
  Country: US (occurrence: US)
  Receive Date: 20251201
  Receipt Date: 20251201
  Transmission Date: 20260118
  Serious: Yes (Hospitalization, Other)
  Sender: AMNEAL
  Company Number: US-AMNEAL PHARMACEUTICALS-2025-AMRX-04616

PATIENT
  Sex: Female

DRUGS (1)
  1. LIDOCAINE [Suspect]
     Active Substance: LIDOCAINE
     Indication: Pain management
     Dosage: UNK
     Route: 061

REACTIONS (5)
  - Local anaesthetic systemic toxicity [Unknown]
  - Acute psychosis [Unknown]
  - Hallucination, auditory [Unknown]
  - Agitation [Recovered/Resolved]
  - Paranoia [Unknown]
